FAERS Safety Report 5986023-X (Version None)
Quarter: 2008Q4

REPORT INFORMATION
  Report Type: 
  Country: None (occurrence: None)
  Receive Date: 20081209
  Receipt Date: 20081128
  Transmission Date: 20090506
  Serious: Yes (Other)
  Sender: FDA-Public Use
  Company Number: JP-JNJFOC-20081101581

PATIENT
  Sex: Male

DRUGS (5)
  1. TOPINA [Suspect]
     Indication: EPILEPSY
     Route: 048
  2. HYDANTOL [Concomitant]
     Indication: DRUG USE FOR UNKNOWN INDICATION
  3. HYSERENIN [Concomitant]
     Indication: DRUG USE FOR UNKNOWN INDICATION
  4. RIVOTRIL [Concomitant]
     Indication: DRUG USE FOR UNKNOWN INDICATION
  5. ONEALFA [Concomitant]
     Indication: DRUG USE FOR UNKNOWN INDICATION

REACTIONS (1)
  - STATUS EPILEPTICUS [None]
